FAERS Safety Report 12153149 (Version 1)
Quarter: 2016Q1

REPORT INFORMATION
  Report Type: Spontaneous
  Country: DE (occurrence: DE)
  Receive Date: 20160305
  Receipt Date: 20160305
  Transmission Date: 20160526
  Serious: Yes (Hospitalization, Other)
  Sender: FDA-Public Use
  Company Number: DE-BRISTOL-MYERS SQUIBB COMPANY-BMS-2016-014146

PATIENT
  Sex: Female

DRUGS (1)
  1. ELIQUIS [Suspect]
     Active Substance: APIXABAN
     Indication: DEEP VEIN THROMBOSIS
     Dosage: 5 MG, BID
     Route: 048
     Dates: start: 20150728, end: 20160128

REACTIONS (3)
  - Haemorrhage [Unknown]
  - Anaemia [Recovering/Resolving]
  - Large intestine polyp [Unknown]
